FAERS Safety Report 8033359-7 (Version None)
Quarter: 2012Q1

REPORT INFORMATION
  Report Type: 
  Country: None (occurrence: None)
  Receive Date: 20120110
  Receipt Date: 20120108
  Transmission Date: 20120608
  Serious: No
  Sender: FDA-Public Use
  Company Number: US-PFIZER INC-2012005176

PATIENT
  Sex: Male

DRUGS (1)
  1. LYRICA [Suspect]
     Dosage: UNK
     Route: 048
     Dates: start: 20110101

REACTIONS (5)
  - DYSPHONIA [None]
  - SPEECH DISORDER [None]
  - MUSCULOSKELETAL DISCOMFORT [None]
  - OROPHARYNGEAL DISCOMFORT [None]
  - INCREASED UPPER AIRWAY SECRETION [None]
